FAERS Safety Report 17945078 (Version 2)
Quarter: 2020Q3

REPORT INFORMATION
  Report Type: Spontaneous
  Country: US (occurrence: US)
  Receive Date: 20200625
  Receipt Date: 20200807
  Transmission Date: 20201103
  Serious: No
  Sender: FDA-Public Use
  Company Number: US-SA-2020SA164059

PATIENT

DRUGS (2)
  1. AUBAGIO [Suspect]
     Active Substance: TERIFLUNOMIDE
     Indication: MULTIPLE SCLEROSIS
     Dosage: 14 MG, QD
     Route: 048
     Dates: start: 20191120
  2. DALFAMPRIDINE. [Suspect]
     Active Substance: DALFAMPRIDINE
     Indication: MULTIPLE SCLEROSIS
     Dosage: UNK
     Dates: start: 2020

REACTIONS (12)
  - Neck mass [Unknown]
  - Balance disorder [Unknown]
  - Drug ineffective [Unknown]
  - Asthenia [Unknown]
  - Abdominal pain upper [Unknown]
  - Headache [Unknown]
  - Back pain [Unknown]
  - Paraesthesia [Unknown]
  - Chills [Unknown]
  - Skin burning sensation [Unknown]
  - Insomnia [Unknown]
  - Dizziness [Unknown]

NARRATIVE: CASE EVENT DATE: 2020
